FAERS Safety Report 5827104-0 (Version None)
Quarter: 2008Q3

REPORT INFORMATION
  Report Type: 
  Country: None (occurrence: None)
  Receive Date: 20080729
  Receipt Date: 20080729
  Transmission Date: 20090109
  Serious: Yes (Hospitalization)
  Sender: FDA-Public Use
  Company Number: None

PATIENT
  Sex: Male
  Weight: 70.8 kg

DRUGS (2)
  1. BUSULFAN [Suspect]
     Indication: MYELOFIBROSIS
     Dosage: 66MG 16X Q6HR ORAL
     Route: 048
     Dates: start: 20080422
  2. CYCLOPHOSPHAMIDE [Suspect]
     Indication: MYELOFIBROSIS
     Dosage: 4900 MG 2 DAYS IV
     Route: 042
     Dates: start: 20080426

REACTIONS (4)
  - ABDOMINAL PAIN [None]
  - CLOSTRIDIUM DIFFICILE TOXIN TEST POSITIVE [None]
  - GRAFT VERSUS HOST DISEASE [None]
  - HAEMATEMESIS [None]
